FAERS Safety Report 4898808-1 (Version None)
Quarter: 2006Q1

REPORT INFORMATION
  Report Type: 
  Country: None (occurrence: None)
  Receive Date: 20060202
  Receipt Date: 20050103
  Transmission Date: 20060701
  Serious: Yes (Death)
  Sender: FDA-Public Use
  Company Number: US-GLAXOSMITHKLINE-A0539537A

PATIENT
  Age: 52 Year
  Sex: Male
  Weight: 86.4 kg

DRUGS (3)
  1. PAXIL CR [Suspect]
     Indication: ANXIETY
     Dosage: 12.5MG PER DAY
     Route: 048
     Dates: start: 20040318
  2. VICODIN [Concomitant]
  3. VIOXX [Concomitant]

REACTIONS (1)
  - COMPLETED SUICIDE [None]
